FAERS Safety Report 6134917-7 (Version None)
Quarter: 2009Q1

REPORT INFORMATION
  Report Type: 
  Country: None (occurrence: None)
  Receive Date: 20090327
  Receipt Date: 20090317
  Transmission Date: 20090719
  Serious: Yes (Other)
  Sender: FDA-Public Use
  Company Number: GB-PFIZER INC-2009175196

PATIENT

DRUGS (4)
  1. PREGABALIN [Suspect]
     Indication: ANXIETY
     Dosage: 150 MG, 2X/DAY
  2. OLANZAPINE [Concomitant]
     Dosage: 30 MG, 1X/DAY
     Route: 048
  3. ACAMPROSATE [Concomitant]
     Dosage: 333 MG, 3X/DAY
     Route: 048
  4. LAMOTRIGINE [Concomitant]
     Dosage: 200 MG, 1X/DAY
     Route: 048
     Dates: end: 20090101

REACTIONS (1)
  - PALPITATIONS [None]
